FAERS Safety Report 8973533 (Version 1)
Quarter: 2012Q4

REPORT INFORMATION
  Report Type: 
  Country: GB (occurrence: GB)
  Receive Date: 20121219
  Receipt Date: 20121219
  Transmission Date: 20130627
  Serious: Yes (Other)
  Sender: FDA-Public Use
  Company Number: GB-JNJFOC-20121207736

PATIENT
  Sex: Female

DRUGS (2)
  1. ROGAINE FOR WOMEN REGULAR STRENGTH [Suspect]
     Route: 065
  2. ROGAINE FOR WOMEN REGULAR STRENGTH [Suspect]
     Indication: PRODUCT USED FOR UNKNOWN INDICATION
     Route: 065
     Dates: start: 2012

REACTIONS (1)
  - Lichen planus [Unknown]
